FAERS Safety Report 8976386 (Version 1)
Quarter: 2012Q4

REPORT INFORMATION
  Report Type: 
  Country: US (occurrence: US)
  Receive Date: 20121219
  Receipt Date: 20121219
  Transmission Date: 20130627
  Serious: No
  Sender: FDA-Public Use
  Company Number: US-AMGEN-USASP2012062917

PATIENT
  Age: 83 Year
  Sex: Female

DRUGS (10)
  1. PROLIA [Suspect]
     Indication: OSTEOPOROSIS
     Dosage: UNK
     Dates: start: 201207
  2. PREMARIN [Concomitant]
  3. MULTIVITAMIN                       /00097801/ [Concomitant]
  4. VITAMIN B12                        /00056201/ [Concomitant]
     Dosage: UNK UNK, q6mo
  5. METOPROLOL [Concomitant]
     Dosage: 25 mg, UNK
  6. NORVASC [Concomitant]
     Dosage: 5 mg, UNK
  7. CLONIDINE [Concomitant]
     Dosage: .1 mg, UNK
  8. CALCIUM + VITAMIN D [Concomitant]
     Dosage: 1000 unit, UNK
  9. VITAMIN D /00107901/ [Concomitant]
     Dosage: 1000 IU, qd
  10. MAGNESIUM OXIDE [Concomitant]
     Dosage: 400 mg, UNK

REACTIONS (3)
  - Neck pain [Not Recovered/Not Resolved]
  - Musculoskeletal pain [Not Recovered/Not Resolved]
  - Back pain [Not Recovered/Not Resolved]
